FAERS Safety Report 13026256 (Version 2)
Quarter: 2017Q1

REPORT INFORMATION
  Report Type: Spontaneous
  Country: FR (occurrence: FR)
  Receive Date: 20161214
  Receipt Date: 20170124
  Transmission Date: 20170428
  Serious: Yes (Other)
  Sender: FDA-Public Use
  Company Number: FR-SA-2016SA223124

PATIENT
  Age: 58 Year
  Sex: Female

DRUGS (18)
  1. MYOZYME [Suspect]
     Active Substance: ALGLUCOSIDASE ALFA
     Indication: GLYCOGEN STORAGE DISEASE TYPE II
     Route: 041
     Dates: start: 2015, end: 20160301
  2. STILNOX [Concomitant]
     Active Substance: ZOLPIDEM TARTRATE
  3. ZAMUDOL [Concomitant]
     Active Substance: TRAMADOL HYDROCHLORIDE
     Dosage: 1 CAPSULE MORNING
  4. BECLOMETASONE DIPROPIONATE/FORMOTEROL FUMARATE [Concomitant]
     Dosage: 2 PUFFS IN MORNING AND 2 PUFFS IN EVENING DOSE:2 PUFF(S)
  5. SINGULAIR [Concomitant]
     Active Substance: MONTELUKAST SODIUM
  6. MYOZYME [Suspect]
     Active Substance: ALGLUCOSIDASE ALFA
     Indication: GLYCOGEN STORAGE DISEASE TYPE II
     Route: 041
     Dates: start: 201309, end: 2015
  7. CO-RENITEC [Concomitant]
     Active Substance: ENALAPRIL\HYDROCHLOROTHIAZIDE
     Dosage: 20/12.5 MG IN MORNING.
  8. ABUFENE [Concomitant]
  9. CETIRIZINE [Concomitant]
     Active Substance: CETIRIZINE HYDROCHLORIDE
  10. INEXIUM [Concomitant]
     Active Substance: ESOMEPRAZOLE
  11. MYOZYME [Suspect]
     Active Substance: ALGLUCOSIDASE ALFA
     Indication: GLYCOGEN STORAGE DISEASE TYPE II
     Route: 041
  12. LAROXYL [Concomitant]
     Active Substance: AMITRIPTYLINE
  13. AVLOCARDYL [Concomitant]
     Active Substance: PROPRANOLOL HYDROCHLORIDE
  14. CYMBALTA [Concomitant]
     Active Substance: DULOXETINE HYDROCHLORIDE
  15. LEXOMIL [Concomitant]
     Active Substance: BROMAZEPAM
  16. LEXOMIL [Concomitant]
     Active Substance: BROMAZEPAM
  17. LOPERAMIDE [Concomitant]
     Active Substance: LOPERAMIDE
  18. ALPRAZOLAM. [Concomitant]
     Active Substance: ALPRAZOLAM

REACTIONS (2)
  - Small fibre neuropathy [Not Recovered/Not Resolved]
  - Burning sensation [Recovered/Resolved]

NARRATIVE: CASE EVENT DATE: 201512
